FAERS Safety Report 25421124 (Version 1)
Quarter: 2025Q2

REPORT INFORMATION
  Report Type: Other
  Country: US (occurrence: US)
  Receive Date: 20250611
  Receipt Date: 20250611
  Transmission Date: 20250716
  Serious: Yes (Life-Threatening, Hospitalization, Other)
  Sender: ALVOGEN
  Company Number: US-ALVOGEN-2025098120

PATIENT
  Age: 74 Year
  Sex: Female

DRUGS (1)
  1. DEXAMETHASONE [Suspect]
     Active Substance: DEXAMETHASONE
     Indication: Lung adenocarcinoma stage IV

REACTIONS (5)
  - Pneumocystis jirovecii pneumonia [Recovering/Resolving]
  - Interstitial lung disease [Recovering/Resolving]
  - Acute respiratory failure [Recovering/Resolving]
  - Immunosuppression [Unknown]
  - Myopathy [Unknown]
